FAERS Safety Report 26059006 (Version 1)
Quarter: 2025Q4

REPORT INFORMATION
  Report Type: Spontaneous
  Country: US (occurrence: US)
  Receive Date: 20251118
  Receipt Date: 20251118
  Transmission Date: 20260119
  Serious: Yes (Other)
  Sender: COLLEGIUM PHARMACEUTICAL
  Company Number: US-COLLEGIUM PHARMACEUTICAL, INC.-20250201783

PATIENT

DRUGS (2)
  1. BELBUCA [Suspect]
     Active Substance: BUPRENORPHINE HYDROCHLORIDE
     Indication: Pain
     Dosage: 300 MICROGRAM, BID
     Route: 065
     Dates: start: 202105, end: 2021
  2. OXYCODONE [Concomitant]
     Active Substance: OXYCODONE
     Indication: Product used for unknown indication
     Dosage: UNK, UNKNOWN
     Route: 065

REACTIONS (2)
  - Dental caries [Unknown]
  - Tooth loss [Unknown]

NARRATIVE: CASE EVENT DATE: 20210101
